FAERS Safety Report 4775720-X (Version None)
Quarter: 2005Q3

REPORT INFORMATION
  Report Type: 
  Country: None (occurrence: None)
  Receive Date: 20050922
  Receipt Date: 20050912
  Transmission Date: 20060218
  Serious: Yes (Other)
  Sender: FDA-Public Use
  Company Number: PHBS2005ZA13328

PATIENT

DRUGS (1)
  1. ZELNORM [Suspect]
     Dosage: 6 MG, UNK
     Route: 048

REACTIONS (1)
  - EPILEPSY [None]
